FAERS Safety Report 5518429-7 (Version None)
Quarter: 2007Q4

REPORT INFORMATION
  Report Type: 
  Country: None (occurrence: None)
  Receive Date: 20071115
  Receipt Date: 20071112
  Transmission Date: 20080405
  Serious: Yes (Death, Life-Threatening, Hospitalization)
  Sender: FDA-Public Use
  Company Number: US-SANOFI-SYNTHELABO-F03200700031

PATIENT
  Sex: Male
  Weight: 75 kg

DRUGS (14)
  1. LASIX [Concomitant]
     Route: 048
  2. INDERAL [Concomitant]
     Route: 048
  3. FOLIC ACID [Concomitant]
     Route: 048
  4. NEXIUM [Concomitant]
     Route: 048
  5. VITAMIN K [Concomitant]
     Route: 048
  6. B1 [Concomitant]
     Route: 048
  7. CETUXIMAB [Suspect]
     Indication: HEPATIC NEOPLASM MALIGNANT
     Dosage: 768 MG (400 MG/M2, 250 MG/M2)
     Route: 042
     Dates: start: 20070119, end: 20070119
  8. OXALIPLATIN [Suspect]
     Indication: HEPATIC NEOPLASM MALIGNANT
     Dosage: 250 MG (130 MG/M2)
     Route: 042
     Dates: start: 20070112, end: 20070112
  9. ATIVAN [Concomitant]
     Route: 065
  10. COMPAZINE [Concomitant]
     Route: 048
  11. PHENERGAN HCL [Concomitant]
     Route: 065
  12. SPIRONOLACTONE [Concomitant]
     Route: 048
  13. OXYCODONE HCL [Concomitant]
     Indication: PAIN
     Route: 048
  14. CAPECITABINE [Suspect]
     Indication: HEPATIC NEOPLASM MALIGNANT
     Route: 048
     Dates: start: 20070112, end: 20070124

REACTIONS (14)
  - ABDOMINAL PAIN [None]
  - ACIDOSIS [None]
  - ASCITES [None]
  - ASPARTATE AMINOTRANSFERASE INCREASED [None]
  - DIARRHOEA [None]
  - HEPATIC ENCEPHALOPATHY [None]
  - HEPATIC FAILURE [None]
  - HYPERKALAEMIA [None]
  - HYPONATRAEMIA [None]
  - HYPOTENSION [None]
  - MENTAL STATUS CHANGES [None]
  - RENAL FAILURE ACUTE [None]
  - RESPIRATORY DISTRESS [None]
  - SEPTIC SHOCK [None]
